FAERS Safety Report 12674898 (Version 1)
Quarter: 2016Q3

REPORT INFORMATION
  Report Type: Report from Study
  Country: US (occurrence: US)
  Receive Date: 20160823
  Receipt Date: 20160823
  Transmission Date: 20161109
  Serious: Yes (Other)
  Sender: FDA-Public Use
  Company Number: US-ROCHE-1548883

PATIENT
  Age: 69 Year
  Sex: Female
  Weight: 42.91 kg

DRUGS (48)
  1. CELLCEPT [Suspect]
     Active Substance: MYCOPHENOLATE MOFETIL\MYCOPHENOLATE MOFETIL HYDROCHLORIDE
     Indication: CONNECTIVE TISSUE DISORDER
  2. CYTOMEL [Concomitant]
     Active Substance: LIOTHYRONINE SODIUM
     Route: 048
  3. KLOR-CON [Concomitant]
     Active Substance: POTASSIUM CHLORIDE
  4. TOPROL XL [Concomitant]
     Active Substance: METOPROLOL SUCCINATE
     Dosage: AS NEEDED
     Route: 065
  5. NITROGLYCERIN. [Concomitant]
     Active Substance: NITROGLYCERIN
  6. OMEGA 3 [Concomitant]
     Active Substance: OMEGA-3 FATTY ACIDS
     Route: 065
  7. SULFACETAMIDE SODIUM. [Concomitant]
     Active Substance: SULFACETAMIDE SODIUM
     Route: 065
  8. VITAMIN D3 [Concomitant]
     Active Substance: CHOLECALCIFEROL
  9. DHEA [Concomitant]
     Active Substance: PRASTERONE
     Route: 048
  10. DICYCLOMINE [Concomitant]
     Active Substance: DICYCLOMINE HYDROCHLORIDE
     Route: 065
  11. CYMBALTA [Concomitant]
     Active Substance: DULOXETINE HYDROCHLORIDE
  12. CREON [Concomitant]
     Active Substance: PANCRELIPASE AMYLASE\PANCRELIPASE LIPASE\PANCRELIPASE PROTEASE
  13. ULTRAVATE OINTMENT 0.05% [Concomitant]
  14. CELLCEPT [Suspect]
     Active Substance: MYCOPHENOLATE MOFETIL\MYCOPHENOLATE MOFETIL HYDROCHLORIDE
     Indication: MYALGIA
     Dosage: 13/AUG/2015
     Route: 048
  15. CORTEF [Concomitant]
     Active Substance: HYDROCORTISONE
     Dosage: 20 MG AM, 20 MG PM
     Route: 065
  16. ULTRAM [Concomitant]
     Active Substance: TRAMADOL HYDROCHLORIDE
     Route: 065
  17. FAMVIR (UNITED STATES) [Concomitant]
  18. LODINE [Concomitant]
     Active Substance: ETODOLAC
  19. ESTRACE [Concomitant]
     Active Substance: ESTRADIOL
     Route: 065
  20. FISH OIL [Concomitant]
     Active Substance: FISH OIL
     Route: 048
  21. PREVACID [Concomitant]
     Active Substance: LANSOPRAZOLE
     Route: 065
  22. CELEBREX [Concomitant]
     Active Substance: CELECOXIB
  23. LEVOCARNITINE. [Concomitant]
     Active Substance: LEVOCARNITINE
  24. VOLTAREN [Concomitant]
     Active Substance: DICLOFENAC SODIUM
     Route: 065
  25. TRIAMCINOLONE ACETONIDE. [Concomitant]
     Active Substance: TRIAMCINOLONE ACETONIDE
  26. CELLCEPT [Suspect]
     Active Substance: MYCOPHENOLATE MOFETIL\MYCOPHENOLATE MOFETIL HYDROCHLORIDE
     Indication: MYOSITIS
  27. PROVIGIL [Concomitant]
     Active Substance: MODAFINIL
  28. REGLAN [Concomitant]
     Active Substance: METOCLOPRAMIDE HYDROCHLORIDE
  29. DOXYCYCLIN [Concomitant]
     Active Substance: DOXYCYCLINE
  30. ZETIA [Concomitant]
     Active Substance: EZETIMIBE
     Route: 065
  31. PROMETRIUM (UNITED STATES) [Concomitant]
     Route: 065
  32. DEPO TESTOSTERONE [Concomitant]
     Active Substance: TESTOSTERONE
     Route: 065
  33. RETIN-A MICRO [Concomitant]
     Active Substance: TRETINOIN
  34. NUTROPIN AQ [Suspect]
     Active Substance: SOMATROPIN
     Indication: HYPOPITUITARISM
     Route: 058
  35. CELLCEPT [Suspect]
     Active Substance: MYCOPHENOLATE MOFETIL\MYCOPHENOLATE MOFETIL HYDROCHLORIDE
     Indication: POLYMYOSITIS
     Route: 048
  36. SYNTHROID [Concomitant]
     Active Substance: LEVOTHYROXINE SODIUM
     Route: 048
  37. LYRICA [Concomitant]
     Active Substance: PREGABALIN
  38. PLAQUENIL [Concomitant]
     Active Substance: HYDROXYCHLOROQUINE SULFATE
  39. INSULIN [Concomitant]
     Active Substance: INSULIN NOS
  40. FLORINEF ACETATE [Concomitant]
     Active Substance: FLUDROCORTISONE ACETATE
     Route: 065
  41. PANCREASE (UNITED STATES) [Concomitant]
  42. NORVASC [Concomitant]
     Active Substance: AMLODIPINE BESYLATE
     Route: 065
  43. NASONEX [Concomitant]
     Active Substance: MOMETASONE FUROATE
     Route: 045
  44. CALCIUM CARBONATE. [Concomitant]
     Active Substance: CALCIUM CARBONATE
     Route: 048
  45. RECLAST [Concomitant]
     Active Substance: ZOLEDRONIC ACID
     Route: 042
     Dates: start: 200807
  46. DDAVP [Concomitant]
     Active Substance: DESMOPRESSIN ACETATE
  47. ALLEGRA-D [Concomitant]
     Active Substance: FEXOFENADINE\PSEUDOEPHEDRINE
  48. TRETINOIN. [Concomitant]
     Active Substance: TRETINOIN
     Route: 065

REACTIONS (19)
  - Neck pain [Unknown]
  - Asthenia [Unknown]
  - Extra dose administered [Unknown]
  - Diarrhoea [Unknown]
  - Myalgia [Unknown]
  - Dizziness [Unknown]
  - Arthralgia [Unknown]
  - Peroneal nerve palsy [Unknown]
  - Visual impairment [Unknown]
  - Alopecia [Unknown]
  - Herpes simplex [Unknown]
  - Constipation [Unknown]
  - Muscular weakness [Unknown]
  - Injection site discolouration [Recovered/Resolved]
  - Thyroid disorder [Unknown]
  - Micturition urgency [Unknown]
  - Insulin-like growth factor decreased [Not Recovered/Not Resolved]
  - Trichorrhexis [Unknown]
  - Muscle disorder [Unknown]

NARRATIVE: CASE EVENT DATE: 20150507
